FAERS Safety Report 15118519 (Version 1)
Quarter: 2018Q3

REPORT INFORMATION
  Report Type: Spontaneous
  Country: TR (occurrence: TR)
  Receive Date: 20180709
  Receipt Date: 20180709
  Transmission Date: 20181010
  Serious: Yes (Other)
  Sender: FDA-Public Use
  Company Number: TR-EDENBRIDGE PHARMACEUTICALS, LLC-TR-2018EDE000212

PATIENT

DRUGS (2)
  1. PREDNISOLONE SODIUM PHOSPHATE. [Suspect]
     Active Substance: PREDNISOLONE SODIUM PHOSPHATE
     Indication: C3 GLOMERULOPATHY
     Dosage: 1 MG/KG, QD
     Route: 048
  2. PREDNISOLONE SODIUM PHOSPHATE. [Suspect]
     Active Substance: PREDNISOLONE SODIUM PHOSPHATE
     Dosage: TAPERED OFF
     Route: 048

REACTIONS (1)
  - Pneumonia [Unknown]
